FAERS Safety Report 20659441 (Version 1)
Quarter: 2022Q1

REPORT INFORMATION
  Report Type: Spontaneous
  Country: NL (occurrence: NL)
  Receive Date: 20220331
  Receipt Date: 20220331
  Transmission Date: 20220423
  Serious: Yes (Death)
  Sender: FDA-Public Use
  Company Number: NL-NOVARTISPH-NVSC2022NL072699

PATIENT
  Age: 78 Year
  Sex: Male

DRUGS (1)
  1. LEUPROLIDE ACETATE [Suspect]
     Active Substance: LEUPROLIDE ACETATE
     Indication: Prostate cancer
     Dosage: 30 MG (EVERY 6 MONTHS)
     Route: 058
     Dates: start: 20111026

REACTIONS (1)
  - Death [Fatal]

NARRATIVE: CASE EVENT DATE: 20131222
